FAERS Safety Report 24913932 (Version 1)
Quarter: 2025Q1

REPORT INFORMATION
  Report Type: Report from Study
  Country: GB (occurrence: GB)
  Receive Date: 20250202
  Receipt Date: 20250202
  Transmission Date: 20250408
  Serious: Yes (Hospitalization)
  Sender: CELLTRION
  Company Number: GB-CELLTRION INC.-2025GB002661

PATIENT

DRUGS (1)
  1. INFLIXIMAB-DYYB [Suspect]
     Active Substance: INFLIXIMAB-DYYB
     Indication: Rheumatoid arthritis
     Route: 058
     Dates: start: 202411

REACTIONS (8)
  - Condition aggravated [Unknown]
  - Respiration abnormal [Unknown]
  - Abdominal discomfort [Unknown]
  - Back pain [Unknown]
  - Palpitations [Unknown]
  - Dizziness [Unknown]
  - Nausea [Unknown]
  - Sinusitis [Unknown]
